FAERS Safety Report 21619538 (Version 1)
Quarter: 2022Q4

REPORT INFORMATION
  Report Type: Spontaneous
  Country: US (occurrence: US)
  Receive Date: 20221121
  Receipt Date: 20221121
  Transmission Date: 20230112
  Serious: No
  Sender: FDA-Public Use
  Company Number: US-SPECGX-T202201360

PATIENT
  Sex: Male

DRUGS (1)
  1. DEXTROAMPHET SACCHARAT, AMPHET ASPARTATE, DEXTROAMPHET SULFATE AND AMP [Suspect]
     Active Substance: AMPHETAMINE ASPARTATE\AMPHETAMINE SULFATE\DEXTROAMPHETAMINE SACCHARATE\DEXTROAMPHETAMINE SULFATE
     Indication: Fatigue
     Dosage: UNK
     Route: 065
     Dates: start: 20220607

REACTIONS (15)
  - Yawning [Unknown]
  - Fatigue [Unknown]
  - General physical health deterioration [Unknown]
  - Feeling abnormal [Unknown]
  - Confusional state [Unknown]
  - Loss of personal independence in daily activities [Unknown]
  - Dizziness [Unknown]
  - Illness [Unknown]
  - Nausea [Unknown]
  - Vomiting [Unknown]
  - Diarrhoea [Unknown]
  - Palpitations [Unknown]
  - Drug ineffective [Unknown]
  - Product use in unapproved indication [Unknown]
  - Product formulation issue [Unknown]

NARRATIVE: CASE EVENT DATE: 20220601
